FAERS Safety Report 4947611-2 (Version None)
Quarter: 2006Q1

REPORT INFORMATION
  Report Type: 
  Country: None (occurrence: None)
  Receive Date: 20060320
  Receipt Date: 20060307
  Transmission Date: 20060701
  Serious: Yes (Hospitalization)
  Sender: FDA-Public Use
  Company Number: FR-JNJFOC-20060302041

PATIENT
  Sex: Female
  Weight: 74.6 kg

DRUGS (8)
  1. DITROPAN [Suspect]
     Indication: DRUG USE FOR UNKNOWN INDICATION
  2. COVERSYL [Suspect]
     Indication: DRUG USE FOR UNKNOWN INDICATION
  3. PROZAC [Suspect]
  4. PROZAC [Suspect]
  5. PROZAC [Suspect]
     Indication: DRUG USE FOR UNKNOWN INDICATION
  6. FONZYLANE [Suspect]
     Indication: DRUG USE FOR UNKNOWN INDICATION
  7. IMOVANE [Suspect]
     Indication: DRUG USE FOR UNKNOWN INDICATION
  8. ZOCOR [Suspect]
     Indication: DRUG USE FOR UNKNOWN INDICATION

REACTIONS (6)
  - ALVEOLITIS [None]
  - INTERSTITIAL LUNG DISEASE [None]
  - LEFT VENTRICULAR FAILURE [None]
  - PULMONARY EMBOLISM [None]
  - PULMONARY FIBROSIS [None]
  - PULMONARY HYPERTENSION [None]
